FAERS Safety Report 4274125-8 (Version None)
Quarter: 2004Q1

REPORT INFORMATION
  Report Type: 
  Country: None (occurrence: None)
  Receive Date: 20040120
  Receipt Date: 20040119
  Transmission Date: 20041129
  Serious: Yes (Other)
  Sender: FDA-Public Use
  Company Number: DE-GLAXOSMITHKLINE-D0042919A

PATIENT
  Age: 31 Year
  Sex: Female

DRUGS (3)
  1. COMBIVIR [Suspect]
     Indication: HIV INFECTION
     Dosage: 2TAB PER DAY
     Route: 048
     Dates: start: 20031201
  2. CRIXIVAN [Concomitant]
     Indication: HIV INFECTION
     Dosage: 1200MG PER DAY
     Route: 048
     Dates: start: 20031201
  3. NORVIR [Concomitant]
     Indication: HIV INFECTION
     Dosage: 100MG PER DAY
     Route: 048
     Dates: start: 20031201

REACTIONS (1)
  - LOBAR PNEUMONIA [None]
